FAERS Safety Report 17367532 (Version 1)
Quarter: 2020Q1

REPORT INFORMATION
  Report Type: Spontaneous
  Country: JP (occurrence: JP)
  Receive Date: 20200204
  Receipt Date: 20200204
  Transmission Date: 20200409
  Serious: Yes (Life-Threatening, Other)
  Sender: FDA-Public Use
  Company Number: JP-FRESENIUS KABI-FK202001097

PATIENT
  Age: 42 Year
  Sex: Female

DRUGS (6)
  1. FENTANYL. [Concomitant]
     Active Substance: FENTANYL
     Indication: PRODUCT USED FOR UNKNOWN INDICATION
     Route: 037
  2. SODIUM CHLORIDE. [Concomitant]
     Active Substance: SODIUM CHLORIDE
     Indication: PRODUCT USED FOR UNKNOWN INDICATION
     Dosage: UNKNOWN
     Route: 065
  3. MEPIVACAINE (MANUFACTURER UNKNOWN) [Suspect]
     Active Substance: MEPIVACAINE HYDROCHLORIDE
     Indication: SPINAL ANAESTHESIA
     Route: 065
  4. BUPIVACAINE. [Concomitant]
     Active Substance: BUPIVACAINE
     Indication: PRODUCT USED FOR UNKNOWN INDICATION
     Route: 037
  5. MEPIVACAINE (MANUFACTURER UNKNOWN) [Suspect]
     Active Substance: MEPIVACAINE HYDROCHLORIDE
     Route: 050
  6. STARCH HYDROLYSED [Concomitant]
     Indication: PRODUCT USED FOR UNKNOWN INDICATION
     Dosage: UNKNOWN
     Route: 065

REACTIONS (2)
  - Anaphylactic shock [Recovered/Resolved]
  - Exposure during pregnancy [Recovered/Resolved]
